FAERS Safety Report 6156465 (Version 3)
Quarter: 2013Q1

REPORT INFORMATION
  Report Type: Spontaneous
  Country: US (occurrence: US)
  Receive Date: 20061030
  Receipt Date: 20130322
  Transmission Date: 20140127
  Serious: Yes (Disabling, Other)
  Sender: FDA-Public Use
  Company Number: US-JNJFOC-20061005989

PATIENT
  Sex: Female
  Weight: 70.76 kg

DRUGS (8)
  1. MOTRIN 800MG [Suspect]
     Indication: ARTHRITIS
  2. MOTRIN 800MG [Suspect]
     Indication: ARTHRITIS
  3. MOTRIN 800MG [Suspect]
     Indication: PAIN
  4. MOTRIN 800MG [Suspect]
     Indication: PAIN
  5. LISINOPRIL [Concomitant]
     Indication: PRODUCT USED FOR UNKNOWN INDICATION
  6. METFORMIN [Concomitant]
     Indication: DIABETES MELLITUS
  7. ISOSORBIDE [Concomitant]
     Indication: CARDIAC DISORDER
  8. PROPACET [Concomitant]
     Indication: PAIN

REACTIONS (8)
  - Gastric disorder [Not Recovered/Not Resolved]
  - Gastrointestinal disorder [Not Recovered/Not Resolved]
  - Blood urine present [Not Recovered/Not Resolved]
  - Hypertension [Not Recovered/Not Resolved]
  - Neuropathy peripheral [Not Recovered/Not Resolved]
  - Hysterectomy [Not Recovered/Not Resolved]
  - Blood cholesterol increased [Not Recovered/Not Resolved]
  - Sensation of pressure [Not Recovered/Not Resolved]
